FAERS Safety Report 7478906-9 (Version None)
Quarter: 2011Q2

REPORT INFORMATION
  Report Type: 
  Country: None (occurrence: None)
  Receive Date: 20110513
  Receipt Date: 20110505
  Transmission Date: 20111010
  Serious: Yes (Other)
  Sender: FDA-Public Use
  Company Number: SE-TEVA-280931ISR

PATIENT
  Sex: Female

DRUGS (7)
  1. METHOTREXATE [Suspect]
     Indication: RHEUMATOID ARTHRITIS
     Dosage: 7 TABLETS WEEKLY
     Route: 048
     Dates: start: 20071128
  2. ACTEMRA [Suspect]
     Route: 042
  3. KETOPROFEN [Concomitant]
     Route: 048
  4. SIMVASTATIN [Concomitant]
     Route: 048
  5. FOLACIN [Concomitant]
     Route: 048
  6. ESTRADIOL VALERATE [Concomitant]
     Route: 048
  7. OMEPRAZOLE [Concomitant]
     Route: 048

REACTIONS (1)
  - BREAST CANCER FEMALE [None]
